FAERS Safety Report 22071094 (Version 1)
Quarter: 2023Q1

REPORT INFORMATION
  Report Type: Spontaneous
  Country: MA (occurrence: MA)
  Receive Date: 20230307
  Receipt Date: 20230307
  Transmission Date: 20230418
  Serious: Yes (Other)
  Sender: FDA-Public Use
  Company Number: MA-009507513-2303MAR000672

PATIENT
  Age: 72 Year
  Sex: Male

DRUGS (1)
  1. PEMBROLIZUMAB [Suspect]
     Active Substance: PEMBROLIZUMAB
     Indication: Gastrointestinal melanoma
     Dosage: 200 MG, EVERY 21 DAYS
     Route: 041

REACTIONS (2)
  - Tumour hyperprogression [Unknown]
  - Drug ineffective [Unknown]
